FAERS Safety Report 6663980-X (Version None)
Quarter: 2010Q2

REPORT INFORMATION
  Report Type: 
  Country: None (occurrence: None)
  Receive Date: 20100401
  Receipt Date: 20100330
  Transmission Date: 20101027
  Serious: Yes (Other)
  Sender: FDA-Public Use
  Company Number: US-ROXANE LABORATORIES, INC.-2010-RO-00355RO

PATIENT
  Age: 42 Year
  Sex: Male

DRUGS (3)
  1. PREDNISONE TAB [Suspect]
     Indication: SARCOIDOSIS
     Dosage: 20 MG
  2. PREDNISONE TAB [Suspect]
     Dosage: 15 MG
  3. ADALIMUMAB [Concomitant]
     Indication: SARCOIDOSIS

REACTIONS (7)
  - BLOOD GLUCOSE INCREASED [None]
  - C-REACTIVE PROTEIN INCREASED [None]
  - DISCOMFORT [None]
  - FATIGUE [None]
  - NIGHT SWEATS [None]
  - POLYARTHRITIS [None]
  - RED BLOOD CELL SEDIMENTATION RATE INCREASED [None]
